FAERS Safety Report 7491419-3 (Version None)
Quarter: 2011Q2

REPORT INFORMATION
  Report Type: 
  Country: None (occurrence: None)
  Receive Date: 20110519
  Receipt Date: 20110506
  Transmission Date: 20111010
  Serious: Yes (Other)
  Sender: FDA-Public Use
  Company Number: PHHY2011FR39900

PATIENT
  Sex: Male

DRUGS (5)
  1. TEGRETOL [Suspect]
     Dosage: 600 MG, DAILY
  2. TERCIAN [Concomitant]
  3. PARKINANE [Concomitant]
  4. HALDOL RETARD [Concomitant]
     Dosage: UNK
     Dates: start: 19990101
  5. PAROXETINE HCL [Concomitant]
     Dosage: 0.5 DF, QD
     Dates: start: 20020101, end: 20100925

REACTIONS (6)
  - ANAEMIA MACROCYTIC [None]
  - HAEMOLYTIC ANAEMIA [None]
  - FOLATE DEFICIENCY [None]
  - CELL DEATH [None]
  - HELLP SYNDROME [None]
  - THROMBOCYTOPENIA [None]
